FAERS Safety Report 4450812-3 (Version None)
Quarter: 2004Q3

REPORT INFORMATION
  Report Type: 
  Country: None (occurrence: None)
  Receive Date: 20040916
  Receipt Date: 20011002
  Transmission Date: 20050211
  Serious: Yes (Other)
  Sender: FDA-Public Use
  Company Number: US-BRISTOL-MYERS SQUIBB COMPANY-11012325

PATIENT
  Age: 33 Year
  Sex: Female

DRUGS (9)
  1. STADOL [Suspect]
     Route: 045
  2. STADOL [Suspect]
     Dosage: ROUTE OF ADMINISTRATION:  INJECTION
  3. PROZAC [Concomitant]
     Dates: start: 20001102
  4. HYDROCODONE + ACETAMINOPHEN [Concomitant]
     Dosage: DOSING: 10/650
     Dates: start: 20000310
  5. SUMYCIN [Concomitant]
     Dates: start: 20000129
  6. CLONAZEPAM [Concomitant]
     Dates: start: 20000309
  7. CIMETIDINE [Concomitant]
     Dates: start: 20000309
  8. METHADONE HCL [Concomitant]
     Dates: start: 20001009
  9. OXYCONTIN [Concomitant]
     Dates: start: 20001116

REACTIONS (1)
  - DEPENDENCE [None]
